FAERS Safety Report 6243257-7 (Version None)
Quarter: 2009Q2

REPORT INFORMATION
  Report Type: 
  Country: None (occurrence: None)
  Receive Date: 20090622
  Receipt Date: 20090622
  Transmission Date: 20091009
  Serious: Yes (Disabling)
  Sender: FDA-Public Use
  Company Number: None

PATIENT
  Age: 49 Year
  Sex: Male
  Weight: 61.6892 kg

DRUGS (15)
  1. VANCOMYCIN [Suspect]
     Indication: STAPHYLOCOCCAL INFECTION
     Dosage: 2200 MG; 3000 MG 12H; Q48H IV DRIP
     Route: 041
     Dates: start: 20081003, end: 20081009
  2. FUROSEMIDE 100 MG [Suspect]
     Indication: HYPERTENSION
     Dosage: 60 MG IV; 60 MG ORAL EVERY 12 HOURS IV
     Route: 042
     Dates: start: 20081003, end: 20081007
  3. FUROSEMIDE 100 MG [Suspect]
     Indication: OEDEMA
     Dosage: 60 MG IV; 60 MG ORAL EVERY 12 HOURS IV
     Route: 042
     Dates: start: 20081003, end: 20081007
  4. AMLODIPINE [Concomitant]
  5. BENAZEPRIL HYDROCHLORIDE [Concomitant]
  6. CILOSTAZOL [Concomitant]
  7. DALTEPARIN SODIUM [Concomitant]
  8. CALSARTAN [Concomitant]
  9. HYDROCHLOROTHIAZIDE [Concomitant]
  10. ISOSORIDE [Concomitant]
  11. LEVOFLOXACIN [Concomitant]
  12. METOPROLOL SUCCINATE [Concomitant]
  13. PANTOPRAZOLE SODIUM [Concomitant]
  14. PIPERACILLIN [Concomitant]
  15. TAZO [Concomitant]

REACTIONS (1)
  - RENAL FAILURE ACUTE [None]
